FAERS Safety Report 7367602-4 (Version None)
Quarter: 2011Q1

REPORT INFORMATION
  Report Type: 
  Country: None (occurrence: None)
  Receive Date: 20110322
  Receipt Date: 20110316
  Transmission Date: 20110831
  Serious: Yes (Other)
  Sender: FDA-Public Use
  Company Number: US-AMGEN-USASP2011014696

PATIENT
  Age: 57 Year
  Sex: Female

DRUGS (2)
  1. DEXLANSOPRAZOLE [Concomitant]
  2. PROLIA [Suspect]
     Indication: OSTEOPOROSIS POSTMENOPAUSAL
     Dates: start: 20101227

REACTIONS (5)
  - DYSPHAGIA [None]
  - OESOPHAGEAL ULCER [None]
  - GASTROINTESTINAL INFLAMMATION [None]
  - NAIL DISORDER [None]
  - PARONYCHIA [None]
